FAERS Safety Report 18096404 (Version 3)
Quarter: 2021Q2

REPORT INFORMATION
  Report Type: Report from Study
  Country: DE (occurrence: DE)
  Receive Date: 20200730
  Receipt Date: 20210628
  Transmission Date: 20210717
  Serious: Yes (Other)
  Sender: FDA-Public Use
  Company Number: DE-TEVA-2020-DE-1809087

PATIENT
  Age: 68 Year
  Sex: Female

DRUGS (8)
  1. OMEPRAZOL 20 MG [Concomitant]
     Active Substance: OMEPRAZOLE
  2. SIMBICORD 4.5 UG [Concomitant]
  3. COPAXONE [Suspect]
     Active Substance: GLATIRAMER ACETATE
     Indication: MULTIPLE SCLEROSIS
     Dosage: 20 MILLIGRAM DAILY;
     Dates: start: 20130913
  4. DICLOFENAC RATIOPHARM [Suspect]
     Active Substance: DICLOFENAC
     Indication: PAIN
     Dosage: 100 MILLIGRAM DAILY;
     Route: 048
     Dates: start: 1996
  5. DICLOFENAC ALIUD PHARMA 50 MG [Suspect]
     Active Substance: DICLOFENAC
     Indication: PAIN
     Dosage: 100 MILLIGRAM DAILY;
     Route: 048
     Dates: start: 1996
  6. ALAVERT 20 MG [Concomitant]
  7. BISOPROLOL 5 MG [Concomitant]
     Active Substance: BISOPROLOL
  8. LORANO [Concomitant]
     Active Substance: LORATADINE

REACTIONS (1)
  - Acute kidney injury [Not Recovered/Not Resolved]

NARRATIVE: CASE EVENT DATE: 202005
